FAERS Safety Report 20429947 (Version 1)
Quarter: 2022Q1

REPORT INFORMATION
  Report Type: Report from Study
  Country: FR (occurrence: FR)
  Receive Date: 20220204
  Receipt Date: 20220204
  Transmission Date: 20220423
  Serious: Yes (Hospitalization)
  Sender: FDA-Public Use
  Company Number: FR-SERVIER-S19003573

PATIENT

DRUGS (10)
  1. ONCASPAR [Suspect]
     Active Substance: PEGASPARGASE
     Indication: Acute lymphocytic leukaemia
     Dosage: 3425 IU, ONE DOSE
     Route: 042
     Dates: start: 20181206
  2. VINCRISTINE [Suspect]
     Active Substance: VINCRISTINE
     Indication: Acute lymphocytic leukaemia
     Dosage: UNK
     Route: 042
  3. DEXAMETHASONE [Suspect]
     Active Substance: DEXAMETHASONE
     Indication: Acute lymphocytic leukaemia
     Dosage: UNK
     Route: 048
  4. DAUNORUBICIN HYDROCHLORIDE [Suspect]
     Active Substance: DAUNORUBICIN HYDROCHLORIDE
     Indication: Acute lymphocytic leukaemia
     Dosage: UNK
     Route: 042
  5. METHOTREXATE [Suspect]
     Active Substance: METHOTREXATE
     Indication: Acute lymphocytic leukaemia
     Dosage: UNK
     Route: 037
  6. MACROGOL 4000 DCI [Concomitant]
     Indication: Laxative supportive care
     Dosage: 16 G, QD
     Route: 048
     Dates: start: 20181231
  7. NYSTATIN [Concomitant]
     Active Substance: NYSTATIN
     Indication: Antifungal treatment
     Dosage: 4 DF, QD
     Route: 048
     Dates: start: 20181231
  8. CHLORHEXIDINE/ CHLOROBUTANOL BIOGARAN [Concomitant]
     Indication: Mouth injury
     Dosage: 4 DF, QD
     Route: 048
     Dates: start: 20181231
  9. BACTRIM [Concomitant]
     Active Substance: SULFAMETHOXAZOLE\TRIMETHOPRIM
     Indication: Infection parasitic
     Dosage: 1 DF, QD
     Route: 048
     Dates: start: 20181231
  10. MERCAPTOPURINE [Concomitant]
     Active Substance: MERCAPTOPURINE
     Indication: Neoplasm prophylaxis
     Dosage: 75 MG, QD
     Route: 048
     Dates: start: 20181231

REACTIONS (1)
  - Posterior reversible encephalopathy syndrome [Not Recovered/Not Resolved]

NARRATIVE: CASE EVENT DATE: 20190102
